FAERS Safety Report 6307732-9 (Version None)
Quarter: 2009Q3

REPORT INFORMATION
  Report Type: 
  Country: None (occurrence: None)
  Receive Date: 20090812
  Receipt Date: 20090812
  Transmission Date: 20100115
  Serious: No
  Sender: FDA-Public Use
  Company Number: None

PATIENT
  Age: 59 Year
  Sex: Male
  Weight: 68.0396 kg

DRUGS (2)
  1. HUMIRA [Suspect]
     Indication: PSORIASIS
     Dosage: 40MG Q 2 WEEKS SQ
     Dates: start: 20090202, end: 20090810
  2. HUMIRA [Suspect]
     Indication: RHEUMATOID ARTHRITIS
     Dosage: 40MG Q 2 WEEKS SQ
     Dates: start: 20090202, end: 20090810

REACTIONS (4)
  - CHILLS [None]
  - INSOMNIA [None]
  - NAUSEA [None]
  - PAIN [None]
